FAERS Safety Report 10494837 (Version 1)
Quarter: 2014Q4

REPORT INFORMATION
  Report Type: Spontaneous
  Country: US (occurrence: US)
  Receive Date: 20141003
  Receipt Date: 20141003
  Transmission Date: 20150528
  Serious: Yes (Other)
  Sender: FDA-Public Use
  Company Number: US-BAYER-2014-144999

PATIENT
  Age: 77 Year
  Sex: Male
  Weight: 77 kg

DRUGS (2)
  1. ALEVE [Suspect]
     Active Substance: NAPROXEN SODIUM
     Indication: BACK PAIN
     Dosage: 1 DF, EVERY DAY; THEN ON UNSPECIFIED DATE, EVERY OTHER
     Route: 048
     Dates: start: 201407, end: 20140924
  2. CENTRUM SILVER [Concomitant]
     Active Substance: VITAMINS

REACTIONS (6)
  - Dry skin [Unknown]
  - Incorrect drug administration duration [Unknown]
  - Rash macular [Not Recovered/Not Resolved]
  - Pruritus [Recovered/Resolved]
  - Skin exfoliation [Unknown]
  - Rash macular [Recovered/Resolved]

NARRATIVE: CASE EVENT DATE: 2014
